FAERS Safety Report 5927441-5 (Version None)
Quarter: 2008Q4

REPORT INFORMATION
  Report Type: 
  Country: None (occurrence: None)
  Receive Date: 20081022
  Receipt Date: 20081022
  Transmission Date: 20090506
  Serious: Yes (Other)
  Sender: FDA-Public Use
  Company Number: None

PATIENT
  Sex: Female
  Weight: 70.3075 kg

DRUGS (2)
  1. EPIPEN [Suspect]
     Indication: ARTHROPOD STING
     Dosage: .3MG 1 INJECTION
     Dates: start: 20080817
  2. EPIPEN [Suspect]
     Indication: ARTHROPOD STING
     Dosage: .3MG 1 INJECTION
     Dates: start: 20080911

REACTIONS (2)
  - ARTHRALGIA [None]
  - PAIN IN EXTREMITY [None]
